FAERS Safety Report 17933882 (Version 1)
Quarter: 2020Q2

REPORT INFORMATION
  Report Type: Spontaneous
  Country: PT (occurrence: PT)
  Receive Date: 20200623
  Receipt Date: 20200623
  Transmission Date: 20200714
  Serious: Yes (Other)
  Sender: FDA-Public Use
  Company Number: PT-ANIPHARMA-2020-PT-000028

PATIENT
  Age: 74 Year
  Sex: Male

DRUGS (8)
  1. AVAMYS [Concomitant]
     Active Substance: FLUTICASONE FUROATE
     Route: 045
  2. AMIODARONE [Suspect]
     Active Substance: AMIODARONE
     Dosage: 200 MG QD
     Route: 048
  3. DOMPERIDONE [Concomitant]
     Active Substance: DOMPERIDONE
     Route: 048
  4. ALPRAZOLAM. [Concomitant]
     Active Substance: ALPRAZOLAM
     Route: 048
  5. ATORVASTATIN [Concomitant]
     Active Substance: ATORVASTATIN
     Route: 048
  6. CANDESARTAN CILEXETIL. [Suspect]
     Active Substance: CANDESARTAN CILEXETIL
     Indication: BLOOD PRESSURE ABNORMAL
     Dosage: 12 MG QD
     Route: 048
  7. BILAXTEN [Concomitant]
     Active Substance: BILASTINE
     Dosage: 10 MG UNK
     Route: 048
  8. PARACETAMOL W/TRAMADOL HYDROCHLORIDE( [Concomitant]
     Route: 048

REACTIONS (1)
  - Asthenia [Unknown]
